FAERS Safety Report 18697341 (Version 1)
Quarter: 2021Q1

REPORT INFORMATION
  Report Type: Spontaneous
  Country: US (occurrence: US)
  Receive Date: 20210105
  Receipt Date: 20210105
  Transmission Date: 20210419
  Serious: No
  Sender: FDA-Public Use
  Company Number: US-SA-2020SA373790

PATIENT

DRUGS (1)
  1. DUPIXENT [Suspect]
     Active Substance: DUPILUMAB
     Indication: DERMATITIS ATOPIC

REACTIONS (7)
  - Skin exfoliation [Unknown]
  - Eye pain [Unknown]
  - Eye irritation [Unknown]
  - Erythema [Unknown]
  - Drug ineffective [Unknown]
  - Dermatitis atopic [Unknown]
  - Skin tightness [Unknown]

NARRATIVE: CASE EVENT DATE: 20200821
